FAERS Safety Report 18860905 (Version 2)
Quarter: 2021Q1

REPORT INFORMATION
  Report Type: Report from Study
  Country: US (occurrence: US)
  Receive Date: 20210208
  Receipt Date: 20210326
  Transmission Date: 20210420
  Serious: No
  Sender: FDA-Public Use
  Company Number: NVSC2021US022472

PATIENT
  Sex: Female

DRUGS (2)
  1. ENTRESTO [Suspect]
     Active Substance: SACUBITRIL\VALSARTAN
     Indication: PRODUCT USED FOR UNKNOWN INDICATION
     Dosage: UNK
     Route: 065
  2. ENTRESTO [Suspect]
     Active Substance: SACUBITRIL\VALSARTAN
     Dosage: 1 DF(49/51 MG)
     Route: 065

REACTIONS (7)
  - Blood pressure systolic decreased [Recovering/Resolving]
  - Peripheral swelling [Recovering/Resolving]
  - Contusion [Unknown]
  - Dyspnoea [Recovering/Resolving]
  - Dizziness [Recovered/Resolved]
  - Blood sodium decreased [Recovered/Resolved]
  - Pruritus [Unknown]
